FAERS Safety Report 8916223 (Version 6)
Quarter: 2013Q3

REPORT INFORMATION
  Report Type: Report from Study
  Country: JP (occurrence: JP)
  Receive Date: 20121120
  Receipt Date: 20130724
  Transmission Date: 20140515
  Serious: Yes (Death, Life-Threatening)
  Sender: FDA-Public Use
  Company Number: JP-GLAXOSMITHKLINE-B0845437A

PATIENT
  Age: 48 Year
  Sex: Female
  Weight: 89 kg

DRUGS (3)
  1. VOTRIENT [Suspect]
     Indication: FIBROSARCOMA
     Dosage: 800MG PER DAY
     Route: 048
     Dates: start: 20121029, end: 20121110
  2. VOTRIENT [Suspect]
     Indication: FIBROSARCOMA
     Dosage: 600MG PER DAY
     Route: 048
     Dates: start: 20121126, end: 20121227
  3. DECADRON [Concomitant]
     Indication: FIBROSARCOMA
     Route: 048

REACTIONS (3)
  - Pneumothorax [Recovering/Resolving]
  - Pneumothorax [Fatal]
  - Dyspnoea [Fatal]
